FAERS Safety Report 8375487-2 (Version None)
Quarter: 2012Q2

REPORT INFORMATION
  Report Type: 
  Country: None (occurrence: None)
  Receive Date: 20120518
  Receipt Date: 20120518
  Transmission Date: 20120825
  Serious: Yes (Life-Threatening)
  Sender: FDA-Public Use
  Company Number: None

PATIENT
  Sex: Male
  Weight: 90.7194 kg

DRUGS (2)
  1. VESICARE [Suspect]
     Indication: HYPERTONIC BLADDER
     Dosage: 5 MG 1 EVENING
     Dates: start: 20120412
  2. VESICARE [Suspect]
     Indication: IRRITABLE BOWEL SYNDROME
     Dosage: 5 MG 1 EVENING
     Dates: start: 20120412

REACTIONS (8)
  - SWOLLEN TONGUE [None]
  - DRY MOUTH [None]
  - NIGHTMARE [None]
  - MUSCLE TWITCHING [None]
  - DYSPNOEA [None]
  - SPEECH DISORDER [None]
  - ANXIETY [None]
  - PRURITUS [None]
